FAERS Safety Report 6874040-7 (Version None)
Quarter: 2010Q3

REPORT INFORMATION
  Report Type: 
  Country: None (occurrence: None)
  Receive Date: 20100722
  Receipt Date: 20100708
  Transmission Date: 20110219
  Serious: Yes (Hospitalization)
  Sender: FDA-Public Use
  Company Number: 1000015158

PATIENT
  Age: 93 Year
  Sex: Male

DRUGS (7)
  1. ESCITALOPRAM [Suspect]
     Dosage: 1 DOSAGE FORMS (1 DOSAGE FORMS, 1 IN 1 D), ORAL
     Route: 048
  2. TRIVASTAL [Suspect]
     Dosage: 50 MG (50 MG, 1 IN 1 D), ORAL
     Route: 048
  3. STILNOX [Suspect]
     Indication: SLEEP DISORDER
     Dosage: 0.5 DOSAGE FORMS (0.5 DOSAGE FORMS, 1 IN 1 D), ORAL
     Route: 048
  4. XANAX [Suspect]
     Dosage: 1.5 DOSAGE FORMS (0.5 DOSAGE FORMS, 3 IN 1 D), ORAL
     Route: 048
  5. XYZAL [Concomitant]
  6. KARDEGIC [Concomitant]
  7. MECIR [Concomitant]

REACTIONS (7)
  - ABNORMAL BEHAVIOUR [None]
  - AGGRESSION [None]
  - AGITATION [None]
  - DISORIENTATION [None]
  - HALLUCINATION, VISUAL [None]
  - OVERDOSE [None]
  - WITHDRAWAL SYNDROME [None]
